FAERS Safety Report 7235892-4 (Version None)
Quarter: 2011Q1

REPORT INFORMATION
  Report Type: 
  Country: None (occurrence: None)
  Receive Date: 20110120
  Receipt Date: 20110117
  Transmission Date: 20110831
  Serious: Yes (Death, Other)
  Sender: FDA-Public Use
  Company Number: FR-ROCHE-754071

PATIENT
  Age: 28 Year
  Sex: Male

DRUGS (5)
  1. BUPRENORPHINE [Interacting]
     Route: 065
  2. CYAMEMAZINE [Concomitant]
  3. ALBUTEROL [Concomitant]
  4. CLONAZEPAM [Suspect]
     Route: 065
  5. OXAZEPAM [Interacting]
     Route: 065

REACTIONS (3)
  - RESPIRATORY DEPRESSION [None]
  - DRUG INTERACTION [None]
  - ASPIRATION [None]
